FAERS Safety Report 20065909 (Version 1)
Quarter: 2021Q4

REPORT INFORMATION
  Report Type: Spontaneous
  Country: FR (occurrence: FR)
  Receive Date: 20211114
  Receipt Date: 20211114
  Transmission Date: 20220303
  Serious: Yes (Life-Threatening, Other)
  Sender: FDA-Public Use
  Company Number: None

PATIENT
  Age: 48 Year
  Sex: Male
  Weight: 113 kg

DRUGS (2)
  1. DIAZEPAM [Suspect]
     Active Substance: DIAZEPAM
     Dosage: NO INFORMATION,THERAPY END DATE :NOT ASKED
     Route: 065
     Dates: start: 20210616
  2. LYRICA [Suspect]
     Active Substance: PREGABALIN
     Dosage: 50 TABS OF 300 MG (ASSUMED INGESTED DOSE OF 15G),THERAPY END DATE:NOT ASKED
     Route: 048
     Dates: start: 20210616

REACTIONS (3)
  - Intentional product misuse [Recovering/Resolving]
  - Coma [Recovered/Resolved]
  - Mydriasis [Recovered/Resolved]

NARRATIVE: CASE EVENT DATE: 20210617
